FAERS Safety Report 7093430-3 (Version None)
Quarter: 2010Q4

REPORT INFORMATION
  Report Type: 
  Country: None (occurrence: None)
  Receive Date: 20101110
  Receipt Date: 20101029
  Transmission Date: 20110411
  Serious: Yes (Other)
  Sender: FDA-Public Use
  Company Number: PHHY2010BR61091

PATIENT
  Age: 65 Year
  Sex: Female

DRUGS (3)
  1. TEGRETOL-XR [Suspect]
     Indication: CONVULSION
     Dosage: 1 DF, BID
     Route: 048
  2. TEGRETOL-XR [Suspect]
     Dosage: 0.5 DF MORNING, 1 DF NIGHT
     Route: 048
  3. TEGRETOL-XR [Suspect]
     Dosage: 1 DF, BID
     Route: 048
     Dates: start: 20100906

REACTIONS (8)
  - BEDRIDDEN [None]
  - CONVULSION [None]
  - DRUG INEFFECTIVE [None]
  - FALL [None]
  - HEAD INJURY [None]
  - NECK INJURY [None]
  - SYNCOPE [None]
  - TOOTH LOSS [None]
